FAERS Safety Report 9958659 (Version 1)
Quarter: 2014Q1

REPORT INFORMATION
  Report Type: Spontaneous
  Country: JP (occurrence: None)
  Receive Date: 20140228
  Receipt Date: 20140228
  Transmission Date: 20141002
  Serious: Yes (Death)
  Sender: FDA-Public Use
  Company Number: 2014JP00155

PATIENT
  Sex: 0

DRUGS (1)
  1. RISPERIDONE (RISPERIDONE) [Suspect]

REACTIONS (1)
  - Toxicity to various agents [None]
